FAERS Safety Report 5257921-X (Version None)
Quarter: 2007Q1

REPORT INFORMATION
  Report Type: 
  Country: None (occurrence: None)
  Receive Date: 20070307
  Receipt Date: 20061128
  Transmission Date: 20070707
  Serious: No
  Sender: FDA-Public Use
  Company Number: US-GLAXOSMITHKLINE-A0624578A

PATIENT
  Age: 43 Year
  Sex: Female
  Weight: 104.5 kg

DRUGS (5)
  1. REQUIP [Suspect]
     Indication: RESTLESS LEGS SYNDROME
     Dosage: 3MG PER DAY
     Route: 048
     Dates: start: 20060929, end: 20061010
  2. KLONOPIN [Suspect]
  3. UNKNOWN MEDICATION [Concomitant]
  4. TYLENOL [Concomitant]
  5. B-12 [Concomitant]
     Route: 060

REACTIONS (2)
  - DIZZINESS [None]
  - VOMITING [None]
